FAERS Safety Report 18203357 (Version 1)
Quarter: 2020Q3

REPORT INFORMATION
  Report Type: Spontaneous
  Country: US (occurrence: US)
  Receive Date: 20200827
  Receipt Date: 20200827
  Transmission Date: 20201103
  Serious: Yes (Hospitalization)
  Sender: FDA-Public Use
  Company Number: US-GW PHARMA-202008USGW02890

PATIENT

DRUGS (1)
  1. EPIDIOLEX [Suspect]
     Active Substance: CANNABIDIOL
     Indication: PRODUCT USED FOR UNKNOWN INDICATION
     Dosage: 480 MILLIGRAM, BID (FIRST SHIPPED: 16?JUL?2020)
     Route: 048
     Dates: start: 202007

REACTIONS (3)
  - Agitation [Unknown]
  - Anger [Unknown]
  - Drug screen positive [Unknown]

NARRATIVE: CASE EVENT DATE: 2020
